FAERS Safety Report 15403415 (Version 1)
Quarter: 2018Q3

REPORT INFORMATION
  Report Type: Spontaneous
  Country: GR (occurrence: GR)
  Receive Date: 20180919
  Receipt Date: 20180919
  Transmission Date: 20181010
  Serious: Yes (Death, Life-Threatening, Hospitalization, Other)
  Sender: FDA-Public Use
  Company Number: PHHY2017GR203462

PATIENT
  Age: 48 Year
  Sex: Male
  Weight: 59 kg

DRUGS (11)
  1. DEXAMETHASONE. [Suspect]
     Active Substance: DEXAMETHASONE
     Dosage: 20 MG, QD
     Route: 048
     Dates: start: 20170404, end: 20170502
  2. CYTOXAN [Suspect]
     Active Substance: CYCLOPHOSPHAMIDE
     Indication: PLASMA CELL MYELOMA RECURRENT
     Dosage: 400 MG/M2, QD
     Route: 042
     Dates: start: 20160628, end: 20170120
  3. REVLIMID [Suspect]
     Active Substance: LENALIDOMIDE
     Indication: PLASMA CELL MYELOMA RECURRENT
     Dosage: 10 MG, QD
     Route: 048
  4. DEXAMETHASONE. [Suspect]
     Active Substance: DEXAMETHASONE
     Indication: PLASMA CELL MYELOMA RECURRENT
     Dosage: 40 MG, QD
     Route: 048
     Dates: start: 20160628, end: 20170120
  5. VELCADE [Suspect]
     Active Substance: BORTEZOMIB
     Indication: PLASMA CELL MYELOMA RECURRENT
     Dosage: 1.3 MG/M2, QD (LYOPHILIZED POWDER)
     Route: 058
     Dates: start: 20160628, end: 20161201
  6. VELCADE [Suspect]
     Active Substance: BORTEZOMIB
     Dosage: 1.3 MG/M2, QD (LYOPHILIZED POWDER)
     Route: 058
     Dates: start: 20170116, end: 20170120
  7. VELCADE [Suspect]
     Active Substance: BORTEZOMIB
     Dosage: 1.3 MG/M2, QD (LYOPHILIZED POWDER)
     Route: 058
     Dates: start: 20170404, end: 20170502
  8. IMNOVID [Suspect]
     Active Substance: POMALIDOMIDE
     Indication: PLASMA CELL MYELOMA RECURRENT
     Dosage: 4 MG, QD
     Route: 048
     Dates: start: 20170404, end: 20170414
  9. PLATINOL [Suspect]
     Active Substance: CISPLATIN
     Indication: PLASMA CELL MYELOMA RECURRENT
     Dosage: 10 MG/M2, QD
     Route: 042
     Dates: start: 20160628, end: 20170120
  10. ETOPOSIDE. [Suspect]
     Active Substance: ETOPOSIDE
     Indication: PLASMA CELL MYELOMA RECURRENT
     Dosage: 40 MG/M2, QD
     Route: 065
     Dates: start: 20160628, end: 20170120
  11. ADRIAMYCIN [Suspect]
     Active Substance: DOXORUBICIN HYDROCHLORIDE
     Indication: PLASMA CELL MYELOMA RECURRENT
     Dosage: 10 MG/M2, QD
     Route: 042
     Dates: start: 20160628, end: 20170120

REACTIONS (8)
  - Respiratory tract infection [Recovered/Resolved]
  - Product use in unapproved indication [Unknown]
  - Plasma cell leukaemia [Fatal]
  - Febrile neutropenia [Recovered/Resolved]
  - Plasma cell myeloma [Fatal]
  - Pyrexia [Fatal]
  - Multiple organ dysfunction syndrome [Fatal]
  - Pyrexia [Recovered/Resolved]

NARRATIVE: CASE EVENT DATE: 20160628
